FAERS Safety Report 14375161 (Version 3)
Quarter: 2018Q2

REPORT INFORMATION
  Report Type: Report from Study
  Country: PA (occurrence: PA)
  Receive Date: 20180111
  Receipt Date: 20180412
  Transmission Date: 20180711
  Serious: Yes (Other)
  Sender: FDA-Public Use
  Company Number: PHHY2017PA135468

PATIENT
  Sex: Male
  Weight: 104 kg

DRUGS (4)
  1. CLEMASTINE FUMARATE. [Concomitant]
     Active Substance: CLEMASTINE FUMARATE
     Indication: PRODUCT USED FOR UNKNOWN INDICATION
     Route: 065
  2. GILENYA [Suspect]
     Active Substance: FINGOLIMOD HYDROCHLORIDE
     Indication: MULTIPLE SCLEROSIS
     Dosage: 0.5 MG, QD
     Route: 065
     Dates: start: 201709
  3. GABAPENTIN SANDOZ [Suspect]
     Active Substance: GABAPENTIN
     Indication: PRODUCT USED FOR UNKNOWN INDICATION
     Dosage: UNK UNK, BID
     Route: 065
  4. URGINAL [Concomitant]
     Indication: PRODUCT USED FOR UNKNOWN INDICATION
     Dosage: 5 MG, QD
     Route: 065

REACTIONS (20)
  - Multiple sclerosis relapse [Recovered/Resolved]
  - Fatigue [Unknown]
  - Muscular weakness [Recovering/Resolving]
  - Gastrointestinal motility disorder [Unknown]
  - Amnesia [Unknown]
  - Vertigo [Unknown]
  - Migraine [Unknown]
  - Dysarthria [Unknown]
  - Feeling abnormal [Unknown]
  - Hypoaesthesia [Unknown]
  - Eye pain [Unknown]
  - Heart rate decreased [Unknown]
  - Head discomfort [Recovering/Resolving]
  - Sleep disorder [Unknown]
  - Illness anxiety disorder [Unknown]
  - Asthenia [Unknown]
  - Malaise [Unknown]
  - Eyelid ptosis [Unknown]
  - Balance disorder [Unknown]
  - Blood pressure decreased [Unknown]
